FAERS Safety Report 5766564-0 (Version None)
Quarter: 2008Q2

REPORT INFORMATION
  Report Type: 
  Country: None (occurrence: None)
  Receive Date: 20080612
  Receipt Date: 20080605
  Transmission Date: 20081010
  Serious: Yes (Hospitalization)
  Sender: FDA-Public Use
  Company Number: US-BAYER-200818838NA

PATIENT
  Age: 28 Year
  Sex: Female
  Weight: 91 kg

DRUGS (2)
  1. MIRENA [Suspect]
     Indication: CONTRACEPTION
     Route: 015
     Dates: start: 20071019
  2. IRON PILLS [Concomitant]
     Indication: ANAEMIA

REACTIONS (11)
  - ABDOMINAL PAIN [None]
  - AMENORRHOEA [None]
  - ANAEMIA [None]
  - BACK PAIN [None]
  - GENITAL HAEMORRHAGE [None]
  - HEADACHE [None]
  - IUCD COMPLICATION [None]
  - NAUSEA [None]
  - PREGNANCY WITH CONTRACEPTIVE DEVICE [None]
  - RASH [None]
  - STILLBIRTH [None]
